FAERS Safety Report 8473777-6 (Version None)
Quarter: 2012Q2

REPORT INFORMATION
  Report Type: 
  Country: None (occurrence: None)
  Receive Date: 20120628
  Receipt Date: 20120301
  Transmission Date: 20120825
  Serious: Yes (Other)
  Sender: FDA-Public Use
  Company Number: US-MYLANLABS-2011S1023021

PATIENT
  Age: 52 Year
  Sex: Female

DRUGS (5)
  1. CLOZAPINE [Suspect]
     Indication: SCHIZOPHRENIA
     Route: 048
     Dates: start: 20050101, end: 20111101
  2. NAMENDA [Concomitant]
  3. CLOZAPINE [Suspect]
     Route: 048
     Dates: start: 20111215, end: 20120101
  4. DEPAKOTE [Concomitant]
  5. RISPERIDONE [Concomitant]

REACTIONS (2)
  - GRANULOCYTOPENIA [None]
  - LEUKOPENIA [None]
